FAERS Safety Report 8613513-3 (Version None)
Quarter: 2012Q3

REPORT INFORMATION
  Report Type: 
  Country: None (occurrence: None)
  Receive Date: 20120823
  Receipt Date: 20120820
  Transmission Date: 20120928
  Serious: Yes (Hospitalization)
  Sender: FDA-Public Use
  Company Number: DE-AMGEN-DEUSP2012044714

PATIENT
  Age: 44 Year
  Sex: Female
  Weight: 72 kg

DRUGS (10)
  1. DEXAMETHASONE SODIUM PHOSPHATE [Concomitant]
     Indication: PREMEDICATION
     Dosage: 8 MG, UNK
     Route: 048
     Dates: start: 20100802, end: 20101004
  2. DEXAMETHASONE SODIUM PHOSPHATE [Concomitant]
     Dosage: 8 MG, UNK
     Route: 042
     Dates: start: 20100803, end: 20101005
  3. NEULASTA [Suspect]
     Indication: COLONY STIMULATING FACTOR PROPHYLAXIS
     Dosage: 6 MG, QD
     Dates: start: 20101006
  4. CYCLOPHOSPHAMIDE [Suspect]
     Indication: BREAST CANCER
     Dosage: 1110 MG, Q3WK
     Route: 041
     Dates: start: 20100803, end: 20101005
  5. PALONOSETRON [Concomitant]
     Indication: PREMEDICATION
     Dosage: 250 MUG, UNK
     Route: 042
     Dates: start: 20100803, end: 20101006
  6. MESNA [Concomitant]
     Indication: PREMEDICATION
     Dosage: 400 MG, UNK
     Route: 042
     Dates: start: 20100803, end: 20101005
  7. BROMOCRIPTIN [Concomitant]
     Indication: PROLACTINOMA
     Dosage: 8.75 MG, UNK
     Route: 048
     Dates: start: 19000101
  8. TAXOTERE [Suspect]
     Indication: BREAST CANCER
     Dosage: 138.75 MG, Q3WK
     Route: 041
     Dates: start: 20100803, end: 20101005
  9. DEXAMETHASONE SODIUM PHOSPHATE [Concomitant]
     Dosage: 16 MG, UNK
     Route: 048
     Dates: start: 20100804, end: 20101007
  10. MESNA [Concomitant]
     Dosage: 800 MG, UNK
     Route: 048
     Dates: start: 20100803, end: 20101005

REACTIONS (1)
  - VENOUS THROMBOSIS [None]
